FAERS Safety Report 9288267 (Version 1)
Quarter: 2013Q2

REPORT INFORMATION
  Report Type: Report from Study
  Country: IN (occurrence: IN)
  Receive Date: 20130514
  Receipt Date: 20130514
  Transmission Date: 20140414
  Serious: Yes (Death, Hospitalization)
  Sender: FDA-Public Use
  Company Number: PHHY2013IN047282

PATIENT
  Sex: Female

DRUGS (2)
  1. ZOMETA [Suspect]
     Indication: BREAST CANCER
     Dosage: 4 MG PER 5 ML
     Route: 042
     Dates: start: 20130116, end: 20130312
  2. FASLODEX [Concomitant]
     Indication: BREAST CANCER
     Dosage: UNK UKN, UNK
     Route: 030
     Dates: start: 2012

REACTIONS (4)
  - Coma hepatic [Fatal]
  - General physical health deterioration [Unknown]
  - Infection [Unknown]
  - Metastases to liver [Unknown]
